FAERS Safety Report 4853143-2 (Version None)
Quarter: 2005Q4

REPORT INFORMATION
  Report Type: 
  Country: None (occurrence: None)
  Receive Date: 20051209
  Receipt Date: 20051207
  Transmission Date: 20060501
  Serious: Yes (Hospitalization)
  Sender: FDA-Public Use
  Company Number: 2005BI020218

PATIENT
  Age: 62 Year
  Sex: Female

DRUGS (2)
  1. AVONEX [Suspect]
     Indication: MULTIPLE SCLEROSIS
     Dosage: 30 UG; QW; IM
     Route: 030
     Dates: start: 20020918
  2. AVONEX [Suspect]
     Indication: MULTIPLE SCLEROSIS
     Dosage: 15 UG; QW; IM
     Route: 030

REACTIONS (7)
  - APPENDICECTOMY [None]
  - COLON CANCER [None]
  - CYST REMOVAL [None]
  - HERNIA REPAIR [None]
  - LYMPHADENECTOMY [None]
  - OOPHORECTOMY [None]
  - SCAR [None]
